FAERS Safety Report 20315727 (Version 1)
Quarter: 2022Q1

REPORT INFORMATION
  Report Type: Spontaneous
  Country: IN (occurrence: IN)
  Receive Date: 20220110
  Receipt Date: 20220110
  Transmission Date: 20220423
  Serious: Yes (Hospitalization, Other)
  Sender: FDA-Public Use
  Company Number: IN-EPICPHARMA-IN-2021EPCLIT01369

PATIENT
  Age: 31 Year
  Sex: Male

DRUGS (1)
  1. METHADONE HYDROCHLORIDE [Suspect]
     Active Substance: METHADONE HYDROCHLORIDE
     Indication: Pain
     Route: 048

REACTIONS (3)
  - Hypercalcaemia [Recovering/Resolving]
  - Adrenal insufficiency [Recovering/Resolving]
  - Electrocardiogram QT prolonged [Recovering/Resolving]
